FAERS Safety Report 4781291-4 (Version None)
Quarter: 2005Q3

REPORT INFORMATION
  Report Type: 
  Country: None (occurrence: None)
  Receive Date: 20050928
  Receipt Date: 20050630
  Transmission Date: 20060218
  Serious: Yes (Hospitalization)
  Sender: FDA-Public Use
  Company Number: US-ABBOTT-05P-163-0304673-00

PATIENT
  Sex: Female

DRUGS (8)
  1. RITONAVIR SOFT GELATIN CAPSULES [Suspect]
     Indication: HIV INFECTION
     Route: 048
     Dates: start: 20041222, end: 20050614
  2. RITONAVIR SOFT GELATIN CAPSULES [Suspect]
     Route: 048
     Dates: start: 20050621
  3. TIPRANAVIR [Concomitant]
     Indication: HIV INFECTION
     Route: 048
     Dates: start: 20041222, end: 20050614
  4. TIPRANAVIR [Concomitant]
     Route: 048
     Dates: start: 20050621
  5. EFAVIRENZ [Concomitant]
     Indication: HIV INFECTION
     Route: 048
     Dates: start: 20041202, end: 20050614
  6. EFAVIRENZ [Concomitant]
     Route: 048
     Dates: start: 20050621
  7. TRUVADA [Concomitant]
     Indication: HIV INFECTION
     Dosage: 200/300
     Route: 048
     Dates: start: 20041222, end: 20050614
  8. TRUVADA [Concomitant]
     Dosage: 200/300
     Route: 048
     Dates: start: 20050621

REACTIONS (1)
  - PNEUMONIA [None]
